FAERS Safety Report 12460391 (Version 2)
Quarter: 2016Q3

REPORT INFORMATION
  Report Type: Report from Study
  Country: US (occurrence: US)
  Receive Date: 20160613
  Receipt Date: 20160905
  Transmission Date: 20161109
  Serious: Yes (Hospitalization, Other)
  Sender: FDA-Public Use
  Company Number: US-JNJFOC-20160605950

PATIENT
  Sex: Male

DRUGS (19)
  1. UMECLIDINIUM BROMIDE [Concomitant]
     Active Substance: UMECLIDINIUM BROMIDE
  2. IMBRUVICA [Suspect]
     Active Substance: IBRUTINIB
     Indication: CHRONIC LYMPHOCYTIC LEUKAEMIA
     Route: 048
     Dates: start: 20150828
  3. IMBRUVICA [Suspect]
     Active Substance: IBRUTINIB
     Indication: CHRONIC LYMPHOCYTIC LEUKAEMIA
     Route: 048
     Dates: start: 20160527
  4. TYLENOL [Concomitant]
     Active Substance: ACETAMINOPHEN
  5. SOTALOL. [Concomitant]
     Active Substance: SOTALOL
  6. VICODIN [Suspect]
     Active Substance: ACETAMINOPHEN\HYDROCODONE BITARTRATE
     Indication: PRODUCT USED FOR UNKNOWN INDICATION
     Route: 065
  7. ASPIRIN. [Concomitant]
     Active Substance: ASPIRIN
  8. LANOXIN [Concomitant]
     Active Substance: DIGOXIN
  9. PERCOCET [Concomitant]
     Active Substance: ACETAMINOPHEN\OXYCODONE HYDROCHLORIDE
     Route: 048
  10. FOLIC ACID. [Concomitant]
     Active Substance: FOLIC ACID
  11. PREDNISONE. [Concomitant]
     Active Substance: PREDNISONE
     Route: 048
  12. ALBUTEROL. [Concomitant]
     Active Substance: ALBUTEROL
  13. SYMBICORT [Concomitant]
     Active Substance: BUDESONIDE\FORMOTEROL FUMARATE DIHYDRATE
  14. NAC AL [Concomitant]
  15. FERROUS SULFATE. [Concomitant]
     Active Substance: FERROUS SULFATE
  16. MAG OXIDE [Concomitant]
     Active Substance: MAGNESIUM OXIDE
  17. IMBRUVICA [Suspect]
     Active Substance: IBRUTINIB
     Indication: CHRONIC LYMPHOCYTIC LEUKAEMIA
     Route: 048
     Dates: start: 201506, end: 201508
  18. OMEPRAZOLE. [Concomitant]
     Active Substance: OMEPRAZOLE
  19. AMBIEN [Concomitant]
     Active Substance: ZOLPIDEM TARTRATE

REACTIONS (11)
  - Head injury [Recovered/Resolved]
  - Back pain [Recovering/Resolving]
  - Cough [Recovering/Resolving]
  - Carotid artery stenosis [Recovering/Resolving]
  - Headache [Recovering/Resolving]
  - Fall [Recovering/Resolving]
  - Atrial fibrillation [Recovering/Resolving]
  - Loss of consciousness [Recovered/Resolved]
  - Blood pressure increased [Recovering/Resolving]
  - Abdominal pain [Recovering/Resolving]
  - Constipation [Recovering/Resolving]

NARRATIVE: CASE EVENT DATE: 2016
